FAERS Safety Report 9167710 (Version 1)
Quarter: 2013Q1

REPORT INFORMATION
  Report Type: Spontaneous
  Country: CN (occurrence: None)
  Receive Date: 20130307
  Receipt Date: 20130307
  Transmission Date: 20140127
  Serious: Yes (Hospitalization)
  Sender: FDA-Public Use
  Company Number: VAL_01453_2013

PATIENT
  Sex: Female
  Weight: 72 kg

DRUGS (2)
  1. METOPROLOL (METOPROLOL-METOPROLOL TARTRATE) [Suspect]
     Indication: PRODUCT USED FOR UNKNOWN INDICATION
     Dosage: (95 MG QD)
     Dates: start: 20110610
  2. DIOVAN [Suspect]
     Dosage: (80 MG QD ORAL)
     Route: 048
     Dates: start: 20110610, end: 20110810

REACTIONS (8)
  - Bronchitis [None]
  - Infection [None]
  - Asthma [None]
  - Increased upper airway secretion [None]
  - Platelet disorder [None]
  - Lipids abnormal [None]
  - Cardiovascular disorder [None]
  - Sensation of foreign body [None]
